FAERS Safety Report 10290129 (Version 1)
Quarter: 2014Q3

REPORT INFORMATION
  Report Type: Spontaneous
  Country: US (occurrence: None)
  Receive Date: 20140707
  Receipt Date: 20140707
  Transmission Date: 20150326
  Serious: No
  Sender: FDA-Public Use
  Company Number: None

PATIENT
  Age: 50 Year
  Sex: Female
  Weight: 83.92 kg

DRUGS (4)
  1. ARMOUR [Concomitant]
  2. TROPICAL CREAM [Concomitant]
  3. DEPRO-MEDROL 40MG/ML MIXED WITH LIDOCAINE, MARCAINE AND SARAPIN [Suspect]
     Active Substance: BUPIVACAINE\LIDOCAINE\METHYLPREDNISOLONE\SARRACENIA PURPUREA
     Indication: MIGRAINE
     Dosage: THERAPY?5/12?6/4
  4. PREDNISONE. [Concomitant]
     Active Substance: PREDNISONE

REACTIONS (17)
  - Constipation [None]
  - Urticaria [None]
  - Back pain [None]
  - Hyperhidrosis [None]
  - Insomnia [None]
  - Vomiting [None]
  - Dyspepsia [None]
  - Acne [None]
  - Pruritus [None]
  - Pain [None]
  - Headache [None]
  - Decreased appetite [None]
  - Thirst [None]
  - Urine output increased [None]
  - Fatigue [None]
  - Flushing [None]
  - Rash [None]

NARRATIVE: CASE EVENT DATE: 20140512
